FAERS Safety Report 5907711-7 (Version None)
Quarter: 2008Q4

REPORT INFORMATION
  Report Type: 
  Country: None (occurrence: None)
  Receive Date: 20081003
  Receipt Date: 19810629
  Transmission Date: 20090506
  Serious: Yes (Death)
  Sender: FDA-Public Use
  Company Number: US-ROCHE-810200119001

PATIENT
  Age: 30 Year
  Sex: Male
  Weight: 54.9 kg

DRUGS (3)
  1. CLONOPIN [Suspect]
     Indication: MYOCLONUS
     Route: 048
     Dates: start: 19810319, end: 19810324
  2. CLONOPIN [Suspect]
     Route: 048
  3. FERROUS SULFATE [Concomitant]
     Indication: DRUG USE FOR UNKNOWN INDICATION
     Route: 065

REACTIONS (2)
  - DEATH [None]
  - DRUG INEFFECTIVE [None]
